FAERS Safety Report 9294541 (Version 1)
Quarter: 2013Q2

REPORT INFORMATION
  Report Type: Spontaneous
  Country: CN (occurrence: CN)
  Receive Date: 20130516
  Receipt Date: 20130516
  Transmission Date: 20140414
  Serious: Yes (Other)
  Sender: FDA-Public Use
  Company Number: CN-BAXTER-2012BAX012161

PATIENT
  Age: 22 Year
  Sex: Female
  Weight: 81.5 kg

DRUGS (1)
  1. SODIUM LACTATE RINGER^S INJECTION [Suspect]
     Indication: FLUID REPLACEMENT
     Route: 041
     Dates: start: 20090310, end: 20090310

REACTIONS (2)
  - Anaphylactoid reaction [Recovered/Resolved]
  - Chills [Recovering/Resolving]
